FAERS Safety Report 6467026-8 (Version None)
Quarter: 2009Q4

REPORT INFORMATION
  Report Type: 
  Country: None (occurrence: None)
  Receive Date: 20091127
  Receipt Date: 20091116
  Transmission Date: 20100525
  Serious: Yes (Death)
  Sender: FDA-Public Use
  Company Number: 2009AC000431

PATIENT
  Age: 69 Year
  Sex: Male

DRUGS (1)
  1. DIGOXIN [Suspect]
     Indication: ATRIAL FIBRILLATION
     Dosage: PO
     Route: 048
     Dates: start: 20071220, end: 20080308

REACTIONS (9)
  - DEMENTIA [None]
  - ECONOMIC PROBLEM [None]
  - INCONTINENCE [None]
  - INJURY [None]
  - MYOSITIS [None]
  - NAUSEA [None]
  - PNEUMONIA ASPIRATION [None]
  - PRODUCT QUALITY ISSUE [None]
  - VOMITING [None]
